FAERS Safety Report 7789488-6 (Version None)
Quarter: 2011Q3

REPORT INFORMATION
  Report Type: 
  Country: None (occurrence: None)
  Receive Date: 20110930
  Receipt Date: 20110926
  Transmission Date: 20111222
  Serious: Yes (Life-Threatening, Other)
  Sender: FDA-Public Use
  Company Number: GB-CUBIST-2011S1000509

PATIENT
  Age: 74 Year
  Sex: Male

DRUGS (2)
  1. CUBICIN [Suspect]
     Indication: ENDOCARDITIS STAPHYLOCOCCAL
     Route: 042
     Dates: start: 20110625, end: 20110727
  2. CUBICIN [Suspect]
     Indication: OSTEOMYELITIS
     Route: 042
     Dates: start: 20110625, end: 20110727

REACTIONS (6)
  - SEPSIS [None]
  - NO THERAPEUTIC RESPONSE [None]
  - DISEASE PROGRESSION [None]
  - STAPHYLOCOCCAL BACTERAEMIA [None]
  - ENDOCARDITIS [None]
  - PATHOGEN RESISTANCE [None]
